FAERS Safety Report 7809282-7 (Version None)
Quarter: 2011Q4

REPORT INFORMATION
  Report Type: 
  Country: None (occurrence: None)
  Receive Date: 20111012
  Receipt Date: 20111004
  Transmission Date: 20120403
  Serious: Yes (Hospitalization)
  Sender: FDA-Public Use
  Company Number: US-SANOFI-AVENTIS-2011SA065176

PATIENT
  Age: 68 Year
  Sex: Female

DRUGS (7)
  1. FLEXERIL [Concomitant]
  2. METOPROLOL TARTRATE [Concomitant]
  3. XANAX [Concomitant]
  4. PLAVIX [Suspect]
     Indication: STENT PLACEMENT
     Route: 048
     Dates: start: 20100801
  5. ASPIRIN [Concomitant]
  6. BENICAR [Concomitant]
  7. AMBIEN [Concomitant]

REACTIONS (13)
  - CORONARY ARTERY OCCLUSION [None]
  - VISUAL IMPAIRMENT [None]
  - DYSPNOEA [None]
  - FATIGUE [None]
  - CARDIAC ENZYMES INCREASED [None]
  - ASTHENIA [None]
  - ABDOMINAL PAIN [None]
  - PAIN IN JAW [None]
  - PYREXIA [None]
  - DIZZINESS [None]
  - MUSCULOSKELETAL PAIN [None]
  - HEADACHE [None]
  - TACHYCARDIA [None]
